FAERS Safety Report 4551791-0 (Version None)
Quarter: 2005Q1

REPORT INFORMATION
  Report Type: 
  Country: None (occurrence: None)
  Receive Date: 20050113
  Receipt Date: 20041222
  Transmission Date: 20050727
  Serious: Yes (Other)
  Sender: FDA-Public Use
  Company Number: DE-GLAXOSMITHKLINE-D0045540A

PATIENT
  Age: 30 Year
  Sex: Female

DRUGS (4)
  1. LAMICTAL [Suspect]
     Indication: BIPOLAR DISORDER
     Dosage: 25MG PER DAY
     Route: 048
     Dates: start: 20041110, end: 20041220
  2. FLUOXETINE [Concomitant]
     Indication: DEPRESSION
     Dosage: 20MG PER DAY
     Dates: start: 20040915
  3. YASMIN [Concomitant]
     Route: 048
  4. PROMETHAZIN [Concomitant]
     Dosage: 50MG PER DAY
     Dates: start: 20040915

REACTIONS (4)
  - CONJUNCTIVAL HAEMORRHAGE [None]
  - CONTUSION [None]
  - EPISTAXIS [None]
  - MENORRHAGIA [None]
